FAERS Safety Report 18191666 (Version 1)
Quarter: 2020Q3

REPORT INFORMATION
  Report Type: Other
  Country: FR (occurrence: FR)
  Receive Date: 20200825
  Receipt Date: 20200825
  Transmission Date: 20201103
  Serious: Yes (Hospitalization)
  Sender: FDA-Public Use
  Company Number: FR-CADILA HEALTHCARE LIMITED-FR-ZYDUS-054837

PATIENT

DRUGS (3)
  1. TRAMADOL. [Suspect]
     Active Substance: TRAMADOL
     Indication: PAIN
     Dosage: 75 MILLIGRAM ONCE TOTAL
     Route: 048
     Dates: start: 20200708
  2. SEBIPROX [Concomitant]
     Active Substance: CICLOPIROX OLAMINE
     Indication: PRODUCT USED FOR UNKNOWN INDICATION
     Dosage: UNK
     Route: 065
  3. PARACETAMOL [Suspect]
     Active Substance: ACETAMINOPHEN
     Indication: PAIN
     Dosage: 650 MILLIGRAM ONCE TOTAL
     Route: 048
     Dates: start: 20200708

REACTIONS (4)
  - Product administration error [Recovered/Resolved]
  - Altered state of consciousness [Recovered/Resolved]
  - Generalised tonic-clonic seizure [Recovered/Resolved]
  - Vomiting [Recovered/Resolved]

NARRATIVE: CASE EVENT DATE: 20200708
